FAERS Safety Report 6468104-X (Version None)
Quarter: 2009Q4

REPORT INFORMATION
  Report Type: 
  Country: None (occurrence: None)
  Receive Date: 20091127
  Receipt Date: 20091113
  Transmission Date: 20100525
  Serious: Yes (Other)
  Sender: FDA-Public Use
  Company Number: 8054999

PATIENT
  Age: 73 Year
  Sex: Female

DRUGS (1)
  1. KEPPRA [Suspect]
     Indication: CONVULSION
     Dosage: PO
     Route: 048
     Dates: start: 20070101

REACTIONS (4)
  - ANTINUCLEAR ANTIBODY POSITIVE [None]
  - PURPURA [None]
  - RASH ERYTHEMATOUS [None]
  - SCLERODERMA [None]
